FAERS Safety Report 9338778 (Version 1)
Quarter: 2013Q2

REPORT INFORMATION
  Report Type: Spontaneous
  Country: US (occurrence: US)
  Receive Date: 20130610
  Receipt Date: 20130610
  Transmission Date: 20140414
  Serious: Yes (Hospitalization, Other)
  Sender: FDA-Public Use
  Company Number: US-AMGEN-USASP2012033422

PATIENT
  Age: 76 Year
  Sex: Female

DRUGS (8)
  1. PROLIA [Suspect]
     Indication: OSTEOPOROSIS POSTMENOPAUSAL
     Dosage: UNK UNK, Q6MO
     Dates: start: 201206
  2. TRAMADOL [Suspect]
     Indication: PAIN
     Dosage: UNK
  3. TYLENOL /00020001/ [Suspect]
     Indication: BACK PAIN
     Dosage: UNK UNK, AS NECESSARY
  4. GABAPENTIN [Suspect]
     Indication: BACK PAIN
     Dosage: UNK
     Dates: start: 201211
  5. PREVACID [Concomitant]
  6. VITAMIN D                          /00107901/ [Concomitant]
     Dosage: 2000 UNK, QD
     Dates: start: 201305
  7. FLOVENT [Concomitant]
  8. VICODIN [Concomitant]
     Indication: PAIN
     Dosage: UNK

REACTIONS (15)
  - Pain [Not Recovered/Not Resolved]
  - Presyncope [Unknown]
  - Disorientation [Unknown]
  - Nausea [Not Recovered/Not Resolved]
  - Vomiting [Unknown]
  - Asthenia [Unknown]
  - Back pain [Unknown]
  - Therapeutic response decreased [Unknown]
  - Feeling abnormal [Not Recovered/Not Resolved]
  - Dizziness [Not Recovered/Not Resolved]
  - Abdominal pain lower [Recovered/Resolved]
  - Abdominal distension [Recovered/Resolved]
  - Somnolence [Recovered/Resolved]
  - Vitamin D decreased [Unknown]
  - Pain in extremity [Unknown]
